FAERS Safety Report 10791993 (Version 7)
Quarter: 2022Q1

REPORT INFORMATION
  Report Type: Spontaneous
  Country: BR (occurrence: BR)
  Receive Date: 20150213
  Receipt Date: 20220330
  Transmission Date: 20220424
  Serious: Yes (Other)
  Sender: FDA-Public Use
  Company Number: BR-JNJFOC-20150206995

PATIENT
  Age: 63 Year
  Sex: Male
  Weight: 83 kg

DRUGS (4)
  1. REMICADE [Suspect]
     Active Substance: INFLIXIMAB
     Indication: Psoriasis
     Route: 042
     Dates: start: 200802
  2. REMICADE [Suspect]
     Active Substance: INFLIXIMAB
     Dosage: VIAL AMPOULE 100 MG
     Route: 042
     Dates: start: 20141201, end: 202104
  3. OMEPRAZOLE [Concomitant]
     Active Substance: OMEPRAZOLE
     Route: 065
  4. GLICLAZIDE [Concomitant]
     Active Substance: GLICLAZIDE
     Indication: Diabetes mellitus
     Route: 065

REACTIONS (7)
  - Lumbar vertebral fracture [Not Recovered/Not Resolved]
  - Dementia [Not Recovered/Not Resolved]
  - Gait inability [Unknown]
  - Autonomic nervous system imbalance [Recovering/Resolving]
  - Fall [Not Recovered/Not Resolved]
  - Parkinsonism [Recovering/Resolving]
  - Psoriasis [Not Recovered/Not Resolved]

NARRATIVE: CASE EVENT DATE: 20110901
